FAERS Safety Report 23439710 (Version 1)
Quarter: 2024Q1

REPORT INFORMATION
  Report Type: Spontaneous
  Country: CN (occurrence: CN)
  Receive Date: 20240124
  Receipt Date: 20240124
  Transmission Date: 20240410
  Serious: Yes (Other)
  Sender: FDA-Public Use
  Company Number: CN-EPICPHARMA-CN-2024EPCLIT00120

PATIENT
  Age: 57 Year
  Sex: Male

DRUGS (9)
  1. LEUCOVORIN CALCIUM [Suspect]
     Active Substance: LEUCOVORIN CALCIUM
     Indication: Ductal adenocarcinoma of pancreas
     Route: 065
     Dates: start: 20190328
  2. IRINOTECAN HYDROCHLORIDE [Suspect]
     Active Substance: IRINOTECAN HYDROCHLORIDE
     Indication: Ductal adenocarcinoma of pancreas
     Route: 065
     Dates: start: 20190328
  3. OXALIPLATIN [Suspect]
     Active Substance: OXALIPLATIN
     Indication: Ductal adenocarcinoma of pancreas
     Route: 065
     Dates: start: 20190328
  4. FLUOROURACIL [Suspect]
     Active Substance: FLUOROURACIL
     Indication: Ductal adenocarcinoma of pancreas
     Route: 065
     Dates: start: 20190328
  5. TORIPALIMAB [Suspect]
     Active Substance: TORIPALIMAB
     Indication: Ductal adenocarcinoma of pancreas
     Route: 065
     Dates: start: 20190328
  6. TORIPALIMAB [Suspect]
     Active Substance: TORIPALIMAB
     Route: 065
     Dates: start: 20190912
  7. TORIPALIMAB [Suspect]
     Active Substance: TORIPALIMAB
     Route: 065
     Dates: start: 20200330
  8. CATEQUENTINIB [Concomitant]
     Active Substance: CATEQUENTINIB
     Route: 065
     Dates: start: 20181124
  9. LEVOTHYROXINE [Concomitant]
     Active Substance: LEVOTHYROXINE\LEVOTHYROXINE SODIUM
     Indication: Hypothyroidism
     Dosage: 150 UG
     Route: 065

REACTIONS (4)
  - Neurotoxicity [Recovered/Resolved]
  - Myelosuppression [Recovered/Resolved]
  - Transaminases increased [Recovered/Resolved]
  - Product use in unapproved indication [Unknown]
